FAERS Safety Report 19078945 (Version 1)
Quarter: 2021Q1

REPORT INFORMATION
  Report Type: Spontaneous
  Country: NL (occurrence: NL)
  Receive Date: 20210331
  Receipt Date: 20210331
  Transmission Date: 20210420
  Serious: Yes (Other)
  Sender: FDA-Public Use
  Company Number: NL-GLAXOSMITHKLINE-NLCH2021015648

PATIENT
  Sex: Male
  Weight: 76 kg

DRUGS (2)
  1. VOLTAREN EMULGEL EXTRA STRONG [Suspect]
     Active Substance: DICLOFENAC DIETHYLAMINE
     Indication: INFLAMMATION
     Dosage: 1 DF, QD, (1 X PER DAY)
     Route: 065
     Dates: start: 202102, end: 20210309
  2. VOLTAREN EMULGEL EXTRA STRONG [Suspect]
     Active Substance: DICLOFENAC DIETHYLAMINE
     Dosage: UNK
     Route: 065

REACTIONS (2)
  - Aphthous ulcer [Recovered/Resolved]
  - Infection susceptibility increased [Recovering/Resolving]
